FAERS Safety Report 20503887 (Version 1)
Quarter: 2022Q1

REPORT INFORMATION
  Report Type: Spontaneous
  Country: US (occurrence: None)
  Receive Date: 20220221
  Receipt Date: 20220221
  Transmission Date: 20220423
  Serious: No
  Sender: FDA-Public Use
  Company Number: None

PATIENT
  Age: 72 Year
  Sex: Female

DRUGS (1)
  1. FORTEO [Suspect]
     Active Substance: TERIPARATIDE
     Dosage: FREQUENCY : DAILY;?

REACTIONS (5)
  - Device difficult to use [None]
  - Extra dose administered [None]
  - Device malfunction [None]
  - Accidental overdose [None]
  - Dizziness [None]

NARRATIVE: CASE EVENT DATE: 20220221
